FAERS Safety Report 5053816-5 (Version None)
Quarter: 2006Q3

REPORT INFORMATION
  Report Type: 
  Country: None (occurrence: None)
  Receive Date: 20060718
  Receipt Date: 20060712
  Transmission Date: 20061208
  Serious: Yes (Hospitalization)
  Sender: FDA-Public Use
  Company Number: 2006A200151

PATIENT
  Age: 9 Year
  Sex: Male

DRUGS (2)
  1. ZIDOVUDINE [Suspect]
     Indication: PROPHYLAXIS AGAINST HIV INFECTION
     Dosage: 8MG TWICE PER DAY
     Route: 048
     Dates: start: 20060619
  2. NEVIRAPINE [Suspect]
     Indication: PROPHYLAXIS AGAINST HIV INFECTION
     Dosage: 8MG AS DIRECTED
     Route: 048
     Dates: start: 20060619, end: 20060625

REACTIONS (2)
  - BLOOD BILIRUBIN INCREASED [None]
  - JAUNDICE NEONATAL [None]
